FAERS Safety Report 4695461-7 (Version None)
Quarter: 2005Q2

REPORT INFORMATION
  Report Type: 
  Country: None (occurrence: None)
  Receive Date: 20050620
  Receipt Date: 20050620
  Transmission Date: 20051028
  Serious: Yes (Death)
  Sender: FDA-Public Use
  Company Number: None

PATIENT
  Age: 79 Year
  Sex: Male
  Weight: 78 kg

DRUGS (3)
  1. MAGNESIUM SULFATE [Suspect]
     Indication: CEREBROVASCULAR ACCIDENT
     Dosage: SEE IMAGE
     Dates: start: 20050328
  2. MAGNESIUM SULFATE [Suspect]
  3. SODIUM CHLORIDE [Concomitant]

REACTIONS (6)
  - APNOEA [None]
  - CEREBRAL INFARCTION [None]
  - CEREBROVASCULAR ACCIDENT [None]
  - DISEASE PROGRESSION [None]
  - PNEUMONIA [None]
  - PULSE ABSENT [None]
